FAERS Safety Report 12163181 (Version 1)
Quarter: 2016Q1

REPORT INFORMATION
  Report Type: Spontaneous
  Country: US (occurrence: US)
  Receive Date: 20160309
  Receipt Date: 20160309
  Transmission Date: 20160526
  Serious: No
  Sender: FDA-Public Use
  Company Number: US-ROCHE-1528107

PATIENT
  Sex: Female

DRUGS (7)
  1. XOLAIR [Suspect]
     Active Substance: OMALIZUMAB
     Indication: URTICARIA
     Route: 058
     Dates: start: 20140729
  2. ALBUTEROL NEBULIZER [Concomitant]
     Active Substance: ALBUTEROL
  3. ALLEGRA [Concomitant]
     Active Substance: FEXOFENADINE HYDROCHLORIDE
     Route: 065
  4. SINGULAIR [Concomitant]
     Active Substance: MONTELUKAST SODIUM
  5. ZYRTEC [Concomitant]
     Active Substance: CETIRIZINE HYDROCHLORIDE
     Route: 065
  6. OMEPRAZOLE. [Concomitant]
     Active Substance: OMEPRAZOLE
  7. CUTIVATE [Concomitant]
     Active Substance: FLUTICASONE PROPIONATE
     Dosage: 0.05 %
     Route: 065

REACTIONS (6)
  - Fatigue [Not Recovered/Not Resolved]
  - Asthenia [Not Recovered/Not Resolved]
  - Pain [Not Recovered/Not Resolved]
  - Burning sensation [Recovered/Resolved]
  - Eyelid oedema [Recovered/Resolved]
  - Lip swelling [Recovered/Resolved]
